FAERS Safety Report 9716066 (Version 1)
Quarter: 2013Q4

REPORT INFORMATION
  Report Type: Spontaneous
  Country: US (occurrence: US)
  Receive Date: 20131127
  Receipt Date: 20131127
  Transmission Date: 20140711
  Serious: Yes (Other)
  Sender: FDA-Public Use
  Company Number: US-BAYER-2013-142387

PATIENT
  Sex: Female

DRUGS (2)
  1. ALEVE CAPLET [Suspect]
  2. IBUPROFEN [Suspect]

REACTIONS (3)
  - Peptic ulcer [None]
  - Dyspepsia [None]
  - Gastrooesophageal reflux disease [None]
